FAERS Safety Report 8708041 (Version 2)
Quarter: 2013Q4

REPORT INFORMATION
  Report Type: Spontaneous
  Country: FR (occurrence: FR)
  Receive Date: 20120806
  Receipt Date: 20131031
  Transmission Date: 20140711
  Serious: Yes (Hospitalization)
  Sender: FDA-Public Use
  Company Number: FR-009507513-1208FRA001028

PATIENT
  Age: 11 Year
  Sex: Female

DRUGS (4)
  1. SINGULAIR [Suspect]
     Dosage: 10 MG, QD
     Route: 048
     Dates: start: 201206, end: 20120629
  2. NASONEX [Concomitant]
  3. SYMBICORT TURBUHALER [Concomitant]
     Route: 045
  4. ZADITEN [Concomitant]

REACTIONS (1)
  - Vasculitis [Not Recovered/Not Resolved]
